FAERS Safety Report 10645896 (Version 1)
Quarter: 2014Q4

REPORT INFORMATION
  Report Type: Spontaneous
  Country: US (occurrence: None)
  Receive Date: 20141205
  Receipt Date: 20141205
  Transmission Date: 20150529
  Serious: Yes (Other)
  Sender: FDA-Public Use
  Company Number: 1000051515

PATIENT
  Age: 76 Year
  Sex: Female

DRUGS (5)
  1. ARICEPT [Concomitant]
     Active Substance: DONEPEZIL HYDROCHLORIDE
  2. VIT D3 (COLECALCIFEROL) [Concomitant]
  3. CITALOPRAM (CITALOPRAM) [Concomitant]
     Active Substance: CITALOPRAM HYDROBROMIDE
  4. NAMENDA [Suspect]
     Active Substance: MEMANTINE HYDROCHLORIDE
     Indication: DEMENTIA ALZHEIMER^S TYPE
     Route: 048
     Dates: start: 20131019
  5. LOSARTAN (LOSARTAN) [Concomitant]
     Active Substance: LOSARTAN

REACTIONS (3)
  - Loss of consciousness [None]
  - Dizziness [None]
  - Arthritis [None]

NARRATIVE: CASE EVENT DATE: 20131107
